FAERS Safety Report 23389313 (Version 2)
Quarter: 2024Q1

REPORT INFORMATION
  Report Type: Spontaneous
  Country: US (occurrence: US)
  Receive Date: 20240110
  Receipt Date: 20240207
  Transmission Date: 20240410
  Serious: Yes (Other)
  Sender: FDA-Public Use
  Company Number: US-ABBVIE-5570085

PATIENT
  Sex: Female

DRUGS (1)
  1. REFRESH P.M. [Suspect]
     Active Substance: MINERAL OIL\PETROLATUM
     Indication: Dry eye
     Dosage: STRENGTH MINERAL OIL 425MG/ML, WHITE PETROLATUM 573MG/ML, AT NIGHT
     Route: 047
     Dates: start: 1994

REACTIONS (2)
  - Eye operation [Recovered/Resolved]
  - Punctal plug insertion [Recovering/Resolving]

NARRATIVE: CASE EVENT DATE: 20140101
